FAERS Safety Report 17082003 (Version 5)
Quarter: 2021Q1

REPORT INFORMATION
  Report Type: Spontaneous
  Country: US (occurrence: US)
  Receive Date: 20191127
  Receipt Date: 20210111
  Transmission Date: 20210419
  Serious: Yes (Hospitalization)
  Sender: FDA-Public Use
  Company Number: US-PFIZER INC-2019508165

PATIENT
  Age: 64 Year
  Sex: Female
  Weight: 108.86 kg

DRUGS (15)
  1. VYNDAQEL [Suspect]
     Active Substance: TAFAMIDIS MEGLUMINE
     Indication: CARDIAC AMYLOIDOSIS
     Dosage: 80 MG, 1X/DAY (20 MG, FOUR ONCE A DAY)
     Route: 048
     Dates: start: 201907
  2. DOXYCYCLINE. [Concomitant]
     Active Substance: DOXYCYCLINE
     Dosage: UNK, 2X/DAY
  3. GABAPENTIN. [Concomitant]
     Active Substance: GABAPENTIN
     Indication: PAIN
     Dosage: 600 MG, 4X/DAY
     Dates: start: 2017
  4. VYNDAQEL [Suspect]
     Active Substance: TAFAMIDIS MEGLUMINE
     Dosage: 20 MG, 4X/DAY
  5. METOPROLOL. [Concomitant]
     Active Substance: METOPROLOL
     Indication: CARDIAC DISORDER
     Dosage: 50 MG, 1X/DAY
     Dates: start: 200702
  6. CLOPIDOGREL [Concomitant]
     Active Substance: CLOPIDOGREL BISULFATE
     Dosage: 75 MG, 1X/DAY
  7. VYNDAQEL [Suspect]
     Active Substance: TAFAMIDIS MEGLUMINE
     Indication: AMYLOIDOSIS
     Dosage: 80 MG, 1X/DAY (20 MG, FOUR ONCE A DAY)
     Route: 048
  8. DULOXETINE. [Concomitant]
     Active Substance: DULOXETINE
     Indication: DEPRESSION
     Dosage: 60 MG, 2X/DAY
     Dates: start: 201005
  9. RANEXA [Concomitant]
     Active Substance: RANOLAZINE
     Indication: CARDIAC DISORDER
     Dosage: 1000 MG, 2X/DAY
     Dates: start: 200702
  10. BRILINTA [Concomitant]
     Active Substance: TICAGRELOR
     Indication: CARDIAC DISORDER
     Dosage: 90 MG, 2X/DAY
  11. GABAPENTIN. [Concomitant]
     Active Substance: GABAPENTIN
     Indication: FIBROMYALGIA
  12. VYNDAQEL [Suspect]
     Active Substance: TAFAMIDIS MEGLUMINE
     Dosage: 80 MG, 1X/DAY, (80 MG TOTAL, ONCE A DAY)
  13. ATORVASTATIN [Concomitant]
     Active Substance: ATORVASTATIN
     Indication: BLOOD CHOLESTEROL ABNORMAL
     Dosage: 40 MG, 2X/DAY
     Dates: start: 20191212
  14. OXYCODONE [Concomitant]
     Active Substance: OXYCODONE
     Indication: PAIN
     Dosage: UNK, AS NEEDED [10?325MG 4X]
     Dates: start: 201907
  15. ROSUVASTATIN. [Concomitant]
     Active Substance: ROSUVASTATIN
     Dosage: 40 MG, 1X/DAY

REACTIONS (11)
  - Eating disorder [Unknown]
  - Pain [Recovering/Resolving]
  - Movement disorder [Unknown]
  - Limb discomfort [Unknown]
  - Product dose omission issue [Unknown]
  - Nerve injury [Recovered/Resolved]
  - Oropharyngeal discomfort [Unknown]
  - Vertigo [Recovering/Resolving]
  - Off label use [Unknown]
  - Musculoskeletal discomfort [Unknown]
  - Feeling abnormal [Unknown]

NARRATIVE: CASE EVENT DATE: 20190109
